FAERS Safety Report 7964431-5 (Version None)
Quarter: 2011Q4

REPORT INFORMATION
  Report Type: 
  Country: None (occurrence: None)
  Receive Date: 20111208
  Receipt Date: 20111205
  Transmission Date: 20120403
  Serious: Yes (Other)
  Sender: FDA-Public Use
  Company Number: CA-PFIZER INC-2011276612

PATIENT
  Age: 71 Year
  Sex: Female
  Weight: 57.596 kg

DRUGS (6)
  1. DETROL LA [Suspect]
     Indication: MICTURITION URGENCY
     Dosage: 2 MG, 1X/DAY IN THE MORNING
     Dates: start: 19980101, end: 20070101
  2. CALCIUM WITH VITAMIN D [Concomitant]
     Dosage: 500 MG, 2 CAPSULES DAILY
  3. DETROL LA [Suspect]
     Dosage: 4 MG, 1X/DAY IN THE MORNING
     Dates: start: 20070101
  4. RANITIDINE [Concomitant]
     Dosage: 75 MG, 1X/DAY AT BEDTIME
  5. GLUCOSAMINE W/CHONDROITIN SULFATES [Concomitant]
     Dosage: 3 TABLETS DAILY
  6. LOVAZA [Concomitant]
     Dosage: 2 CAPSULES DAILY

REACTIONS (3)
  - BLOOD PRESSURE INCREASED [None]
  - TACHYCARDIA [None]
  - CHEST DISCOMFORT [None]
